FAERS Safety Report 9285473 (Version 1)
Quarter: 2013Q2

REPORT INFORMATION
  Report Type: Spontaneous
  Country: US (occurrence: US)
  Receive Date: 20130513
  Receipt Date: 20130513
  Transmission Date: 20140414
  Serious: No
  Sender: FDA-Public Use
  Company Number: US-PFIZER INC-2013146873

PATIENT
  Age: 60 Year
  Sex: Female
  Weight: 113 kg

DRUGS (4)
  1. LYRICA [Suspect]
     Indication: NEUROPATHY PERIPHERAL
     Dosage: 100 MG, 2X/DAY
     Dates: start: 201304
  2. LYRICA [Suspect]
     Dosage: 200 MG, 3X/DAY
     Dates: start: 2013
  3. LYRICA [Suspect]
     Dosage: 100 MG, 1X/DAY
     Dates: start: 201304, end: 201305
  4. VICTOZA [Concomitant]
     Indication: DIABETES MELLITUS
     Dosage: 1.6 MG, 1X/DAY

REACTIONS (2)
  - Incorrect dose administered [Unknown]
  - Pain [Unknown]
